FAERS Safety Report 21285514 (Version 1)
Quarter: 2022Q3

REPORT INFORMATION
  Report Type: Report from Study
  Country: HU (occurrence: None)
  Receive Date: 20220902
  Receipt Date: 20220902
  Transmission Date: 20221027
  Serious: Yes (Hospitalization)
  Sender: FDA-Public Use
  Company Number: HU-ROCHE-3170846

PATIENT
  Age: 67 Year
  Sex: Female

DRUGS (15)
  1. RITUXIMAB [Suspect]
     Active Substance: RITUXIMAB
     Indication: Marginal zone lymphoma refractory
     Dosage: ON DAYS 1, 8,15 AND 22 OF CYCLE 1 AND ON DAY 1 OF CYCLES 2 TO 5?ON 11/MAR/2022, RECEIVED THE MOST RE
     Route: 041
     Dates: start: 20211216
  2. LENALIDOMIDE [Suspect]
     Active Substance: LENALIDOMIDE
     Indication: Marginal zone lymphoma refractory
     Dosage: ON DAYS 1 TO 21 OF EACH CYCLE FOR CYCLES 1 TO12.?ON 16/JUN/2022, RECEIVED THE MOST RECENT DOSE PRIOR
     Route: 048
     Dates: start: 20211216
  3. LENALIDOMIDE [Suspect]
     Active Substance: LENALIDOMIDE
     Dosage: ON DAYS 1 TO 21 OF EACH CYCLE FOR CYCLES 1 TO 12
     Route: 048
  4. TAFASITAMAB-CXIX [Suspect]
     Active Substance: TAFASITAMAB-CXIX
     Indication: Marginal zone lymphoma refractory
     Dosage: ON DAYS 1, 8, 15 AND 22 OF CYCLES 1 TO 3 AND ON DAYS 1 AND 15 (EVERY SECOND WEEK) OF CYCLES 4 TO 12)
     Route: 065
     Dates: start: 20211216
  5. TAFASITAMAB-CXIX [Suspect]
     Active Substance: TAFASITAMAB-CXIX
     Route: 065
     Dates: start: 20220714
  6. FUROSEMIDE [Concomitant]
     Active Substance: FUROSEMIDE
     Dates: start: 2015
  7. ALPRAZOLAM [Concomitant]
     Active Substance: ALPRAZOLAM
     Dates: start: 2019
  8. ALLOPURINOL [Concomitant]
     Active Substance: ALLOPURINOL
     Dates: start: 201910
  9. SOLU-MEDROL [Concomitant]
     Active Substance: METHYLPREDNISOLONE SODIUM SUCCINATE
     Dates: start: 20211216
  10. ACETAMINOPHEN [Concomitant]
     Active Substance: ACETAMINOPHEN
     Dates: start: 20211216
  11. CETIRIZINE HYDROCHLORIDE [Concomitant]
     Active Substance: CETIRIZINE HYDROCHLORIDE
     Dates: start: 20211216
  12. ACYCLOVIR [Concomitant]
     Active Substance: ACYCLOVIR
     Dates: start: 20211216
  13. SULFAMETHOXAZOLE\TRIMETHOPRIM [Concomitant]
     Active Substance: SULFAMETHOXAZOLE\TRIMETHOPRIM
     Dates: start: 20220520, end: 20220529
  14. METFORMIN [Concomitant]
     Active Substance: METFORMIN HYDROCHLORIDE
     Dates: start: 20220602
  15. COMIRNATY [Concomitant]
     Active Substance: TOZINAMERAN
     Dates: start: 20210303, end: 20211118

REACTIONS (1)
  - COVID-19 pneumonia [Recovered/Resolved]

NARRATIVE: CASE EVENT DATE: 20220623
